FAERS Safety Report 24045038 (Version 1)
Quarter: 2024Q3

REPORT INFORMATION
  Report Type: Spontaneous
  Country: US (occurrence: US)
  Receive Date: 20240703
  Receipt Date: 20240703
  Transmission Date: 20241016
  Serious: No
  Sender: STALLERGENES
  Company Number: US-Stallergenes SAS-2158776

PATIENT
  Age: 10 Year
  Sex: Male

DRUGS (2)
  1. PECAN FOOD [Suspect]
     Active Substance: PECAN
     Indication: Skin test
     Dates: start: 202308
  2. PECAN FOOD [Suspect]
     Active Substance: PECAN
     Dates: start: 20240223

REACTIONS (1)
  - No adverse event [Unknown]
